FAERS Safety Report 5595984-2 (Version None)
Quarter: 2008Q1

REPORT INFORMATION
  Report Type: 
  Country: None (occurrence: None)
  Receive Date: 20080118
  Receipt Date: 20080109
  Transmission Date: 20080703
  Serious: Yes (Other)
  Sender: FDA-Public Use
  Company Number: US-WYE-H02045808

PATIENT

DRUGS (2)
  1. ADVIL LIQUI-GELS [Suspect]
     Dosage: UNKNOWN
     Route: 065
  2. NEURONTIN [Suspect]
     Dosage: UNKNOWN
     Route: 065

REACTIONS (1)
  - RENAL FAILURE [None]
